FAERS Safety Report 6726277-5 (Version None)
Quarter: 2010Q2

REPORT INFORMATION
  Report Type: 
  Country: None (occurrence: None)
  Receive Date: 20100514
  Receipt Date: 20100503
  Transmission Date: 20101027
  Serious: Yes (Other)
  Sender: FDA-Public Use
  Company Number: US-JNJFOC-20100503401

PATIENT
  Sex: Female

DRUGS (5)
  1. REMICADE [Suspect]
     Indication: RHEUMATOID ARTHRITIS
     Route: 042
  2. METHOTREXATE [Concomitant]
  3. FOLIC ACID [Concomitant]
  4. AZOR [Concomitant]
  5. SYNTHROID [Concomitant]

REACTIONS (4)
  - INFUSION RELATED REACTION [None]
  - LIP SWELLING [None]
  - THROAT IRRITATION [None]
  - URTICARIA [None]
